FAERS Safety Report 12191534 (Version 1)
Quarter: 2016Q1

REPORT INFORMATION
  Report Type: Spontaneous
  Country: TW (occurrence: TW)
  Receive Date: 20160318
  Receipt Date: 20160318
  Transmission Date: 20160526
  Serious: Yes (Other)
  Sender: FDA-Public Use
  Company Number: TW-WATSON-2016-05596

PATIENT
  Age: 65 Year
  Sex: Male
  Weight: 60 kg

DRUGS (2)
  1. CIPROFLOXACIN LACTATE (UNKNOWN) [Suspect]
     Active Substance: CIPROFLOXACIN LACTATE
     Indication: SALMONELLA BACTERAEMIA
     Dosage: INFUSION
     Route: 042
  2. CEFAZOLIN (UNKNOWN) [Suspect]
     Active Substance: CEFAZOLIN
     Indication: SALMONELLA BACTERAEMIA
     Dosage: UNK
     Route: 051

REACTIONS (5)
  - Drug ineffective [Recovered/Resolved]
  - Abdominal discomfort [Unknown]
  - Rash [Unknown]
  - Dyspnoea [Unknown]
  - Abdominal pain [Unknown]
